FAERS Safety Report 24305088 (Version 1)
Quarter: 2024Q3

REPORT INFORMATION
  Report Type: Spontaneous
  Country: GB (occurrence: GB)
  Receive Date: 20240911
  Receipt Date: 20240911
  Transmission Date: 20241016
  Serious: Yes (Disabling)
  Sender: AUROBINDO
  Company Number: GB-MHRA-MED-202409051036517840-DLRZS

PATIENT
  Sex: Female

DRUGS (1)
  1. EZETIMIBE [Suspect]
     Active Substance: EZETIMIBE
     Indication: Adverse drug reaction
     Dosage: 10 MILLIGRAM, ONCE A DAY
     Route: 065
     Dates: end: 202402

REACTIONS (1)
  - Pancreatic disorder [Not Recovered/Not Resolved]
